FAERS Safety Report 21772136 (Version 1)
Quarter: 2022Q4

REPORT INFORMATION
  Report Type: Spontaneous
  Country: US (occurrence: US)
  Receive Date: 20221223
  Receipt Date: 20221223
  Transmission Date: 20230112
  Serious: No
  Sender: FDA-Public Use
  Company Number: US-CTI BIOPHARMA-2022US03093

PATIENT

DRUGS (15)
  1. VONJO [Suspect]
     Active Substance: PACRITINIB
     Indication: Polycythaemia vera
     Dosage: 200 MG, BID
     Route: 048
     Dates: start: 20220829, end: 202209
  2. SERTRALINE [Concomitant]
     Active Substance: SERTRALINE HYDROCHLORIDE
  3. PROBIOTICS NOS [Concomitant]
     Active Substance: PROBIOTICS NOS
  4. OMEGA-3 FATTY ACIDS [Concomitant]
     Active Substance: OMEGA-3 FATTY ACIDS
  5. NALTREXONE [Concomitant]
     Active Substance: NALTREXONE
  6. MYRBETRIQ [Concomitant]
     Active Substance: MIRABEGRON
  7. GABAPENTIN [Concomitant]
     Active Substance: GABAPENTIN
  8. FOSAMAX [Concomitant]
     Active Substance: ALENDRONATE SODIUM
  9. DONEPEZIL [Concomitant]
     Active Substance: DONEPEZIL
  10. DANAZOL [Concomitant]
     Active Substance: DANAZOL
  11. VITAMINS NOS [Concomitant]
     Active Substance: VITAMINS
  12. CHOLESTYRAMINE [Concomitant]
     Active Substance: CHOLESTYRAMINE
  13. ASPIRIN [Concomitant]
     Active Substance: ASPIRIN
  14. ALLOPURINOL [Concomitant]
     Active Substance: ALLOPURINOL
  15. TYLENOL [Concomitant]
     Active Substance: ACETAMINOPHEN

REACTIONS (2)
  - Diarrhoea [Recovering/Resolving]
  - Vomiting [Recovered/Resolved]
